FAERS Safety Report 6553712-8 (Version None)
Quarter: 2010Q1

REPORT INFORMATION
  Report Type: 
  Country: None (occurrence: None)
  Receive Date: 20100127
  Receipt Date: 20100120
  Transmission Date: 20100710
  Serious: Yes (Hospitalization)
  Sender: FDA-Public Use
  Company Number: FR-BAYER-201013241GPV

PATIENT
  Age: 43 Year
  Sex: Male

DRUGS (3)
  1. IZILOX [Suspect]
     Indication: DRUG USE FOR UNKNOWN INDICATION
     Dosage: UNIT DOSE: 400 MG
     Route: 048
     Dates: start: 20091204, end: 20091207
  2. CORTANCYL [Concomitant]
     Route: 065
  3. PROGRAF [Concomitant]
     Dosage: UNIT DOSE: 0.5 MG
     Route: 048
     Dates: start: 20081003

REACTIONS (3)
  - GRAND MAL CONVULSION [None]
  - HEAD INJURY [None]
  - LOSS OF CONSCIOUSNESS [None]
